FAERS Safety Report 7226572-X (Version None)
Quarter: 2011Q1

REPORT INFORMATION
  Report Type: 
  Country: None (occurrence: None)
  Receive Date: 20110105
  Receipt Date: 20101222
  Transmission Date: 20110831
  Serious: Yes (Death, Hospitalization)
  Sender: FDA-Public Use
  Company Number: 2009AC000120

PATIENT
  Age: 71 Year
  Sex: Male

DRUGS (20)
  1. COREG [Concomitant]
  2. COLCHICINE [Concomitant]
  3. BACTRIM [Concomitant]
  4. DIGOXIN [Suspect]
     Indication: PRODUCT USED FOR UNKNOWN INDICATION
     Dosage: 0.125 MG, QD, PO
     Route: 048
     Dates: start: 20070301, end: 20071224
  5. TYLENOL-500 [Concomitant]
  6. GLIPIZIDE [Concomitant]
  7. DIGOXIN [Suspect]
     Indication: PRODUCT USED FOR UNKNOWN INDICATION
     Dosage: 0.250 MG, QD; PO
     Route: 048
     Dates: start: 20071201, end: 20081201
  8. K-DUR [Concomitant]
  9. ULTRAM [Concomitant]
  10. ATORVOSTATIN [Concomitant]
  11. DIOVAN [Concomitant]
  12. COUMADIN [Concomitant]
  13. AMOXICILLIN [Concomitant]
  14. COLACE [Concomitant]
  15. ISORBIDE [Concomitant]
  16. LIPITOR [Concomitant]
  17. IMDUR [Concomitant]
  18. POTASSIUM [Concomitant]
  19. LASIX [Concomitant]
  20. MAGNESIUM [Concomitant]

REACTIONS (26)
  - CARDIAC FAILURE CONGESTIVE [None]
  - ARRHYTHMIA [None]
  - DYSPNOEA [None]
  - FATIGUE [None]
  - LEFT VENTRICULAR DYSFUNCTION [None]
  - HAEMATOCHEZIA [None]
  - ASPIRATION [None]
  - VENTRICULAR HYPOKINESIA [None]
  - GOUTY ARTHRITIS [None]
  - DYSPNOEA EXERTIONAL [None]
  - RENAL FAILURE CHRONIC [None]
  - MITRAL VALVE STENOSIS [None]
  - LEFT ATRIAL DILATATION [None]
  - ARTHRALGIA [None]
  - JOINT EFFUSION [None]
  - PULMONARY HYPERTENSION [None]
  - ATRIAL FIBRILLATION [None]
  - MITRAL VALVE INCOMPETENCE [None]
  - DYSPHAGIA [None]
  - CORONARY ARTERY STENOSIS [None]
  - TRICUSPID VALVE INCOMPETENCE [None]
  - OSTEOARTHRITIS [None]
  - URINARY TRACT INFECTION [None]
  - ABASIA [None]
  - SYNOVITIS [None]
  - INFLAMMATION [None]
